FAERS Safety Report 8070213 (Version 4)
Quarter: 2013Q3

REPORT INFORMATION
  Report Type: Spontaneous
  Country: US (occurrence: US)
  Receive Date: 20110805
  Receipt Date: 20130731
  Transmission Date: 20140515
  Serious: No
  Sender: FDA-Public Use
  Company Number: US-BIOGENIDEC-2011BI027953

PATIENT
  Age: 46 Year
  Sex: Female

DRUGS (1)
  1. TYSABRI [Suspect]
     Indication: MULTIPLE SCLEROSIS
     Route: 042
     Dates: start: 20110210, end: 20120206

REACTIONS (14)
  - Visual acuity reduced [Not Recovered/Not Resolved]
  - Paraesthesia [Not Recovered/Not Resolved]
  - Vision blurred [Recovered/Resolved]
  - Balance disorder [Not Recovered/Not Resolved]
  - Injury [Not Recovered/Not Resolved]
  - Thermal burn [Recovered/Resolved]
  - Laceration [Recovered/Resolved]
  - Burns second degree [Recovered/Resolved]
  - Somnolence [Recovered/Resolved]
  - Multiple sclerosis [Not Recovered/Not Resolved]
  - Nausea [Recovered/Resolved]
  - Fatigue [Recovered/Resolved]
  - Drug ineffective [Not Recovered/Not Resolved]
  - Headache [Recovered/Resolved]
